FAERS Safety Report 10466940 (Version 9)
Quarter: 2017Q3

REPORT INFORMATION
  Report Type: Report from Study
  Country: CO (occurrence: CO)
  Receive Date: 20140922
  Receipt Date: 20170929
  Transmission Date: 20171127
  Serious: Yes (Other)
  Sender: FDA-Public Use
  Company Number: PHHO2014CO012305

PATIENT
  Age: 63 Year
  Sex: Female
  Weight: 46 kg

DRUGS (8)
  1. METOPROLOL. [Concomitant]
     Active Substance: METOPROLOL
     Indication: SUPRAVENTRICULAR TACHYCARDIA
     Dosage: 50 MG, QD
     Route: 048
     Dates: start: 20120125
  2. CALCIUM CITRATE [Concomitant]
     Active Substance: CALCIUM CITRATE
     Indication: HYPOCALCAEMIA
     Dosage: 500 MG, UNK
     Route: 065
     Dates: start: 20160831
  3. GLIVEC [Suspect]
     Active Substance: IMATINIB MESYLATE
     Indication: CHRONIC MYELOID LEUKAEMIA
     Dosage: 400 MG, QD
     Route: 048
     Dates: start: 20080916
  4. DICLOXACILLINE [Concomitant]
     Indication: VULVITIS
     Dosage: 500 MG, QID
     Route: 048
     Dates: start: 20140731, end: 20140808
  5. AMN107 [Suspect]
     Active Substance: NILOTINIB
     Indication: CHRONIC MYELOID LEUKAEMIA
     Dosage: 400 MG, BID
     Route: 048
     Dates: start: 20110420
  6. LEVOTIROXIN [Concomitant]
     Active Substance: LEVOTHYROXINE SODIUM
     Indication: HYPOTHYROIDISM
     Dosage: 150 UG, UNK
     Route: 065
     Dates: start: 20141210, end: 20160211
  7. LEVOTIROXIN [Concomitant]
     Active Substance: LEVOTHYROXINE SODIUM
     Dosage: 125 UG, UNK
     Route: 065
     Dates: start: 20160212
  8. METFORMIN [Concomitant]
     Active Substance: METFORMIN HYDROCHLORIDE
     Indication: HYPERGLYCAEMIA
     Dosage: 850 MG, QD
     Route: 048
     Dates: start: 20130620

REACTIONS (2)
  - Papillary thyroid cancer [Recovered/Resolved]
  - Second primary malignancy [Recovered/Resolved]

NARRATIVE: CASE EVENT DATE: 20140303
